FAERS Safety Report 18444738 (Version 1)
Quarter: 2020Q4

REPORT INFORMATION
  Report Type: Report from Study
  Country: US (occurrence: US)
  Receive Date: 20201030
  Receipt Date: 20201030
  Transmission Date: 20210114
  Serious: Yes (Other)
  Sender: FDA-Public Use
  Company Number: US-SHIRE-US202017087

PATIENT
  Sex: Female

DRUGS (2)
  1. HUMAN NORMAL IMMUNOGLOBULIN; LIQUID [Suspect]
     Active Substance: HUMAN IMMUNOGLOBULIN G
     Indication: PRIMARY IMMUNODEFICIENCY SYNDROME
     Dosage: UNK
     Route: 042
  2. PANZYGA [Suspect]
     Active Substance: HUMAN IMMUNOGLOBULIN G
     Indication: PRIMARY IMMUNODEFICIENCY SYNDROME
     Route: 065

REACTIONS (11)
  - Weight decreased [Unknown]
  - Diverticulitis [Unknown]
  - Feeling abnormal [Unknown]
  - Asthma [Unknown]
  - Diarrhoea [Recovered/Resolved]
  - Cough [Unknown]
  - Rash [Recovered/Resolved]
  - Bronchitis [Unknown]
  - Illness [Unknown]
  - Nonspecific reaction [Unknown]
  - Migraine [Unknown]
